FAERS Safety Report 6193465-9 (Version None)
Quarter: 2009Q2

REPORT INFORMATION
  Report Type: 
  Country: None (occurrence: None)
  Receive Date: 20090514
  Receipt Date: 20090514
  Transmission Date: 20091009
  Serious: No
  Sender: FDA-Public Use
  Company Number: None

PATIENT
  Sex: Female
  Weight: 52.2 kg

DRUGS (1)
  1. VENOFER [Suspect]
     Indication: ANAEMIA
     Dosage: 300 MG QAM X 1 DOSE  IV DRIP
     Route: 041
     Dates: start: 20090506, end: 20090507

REACTIONS (1)
  - INFUSION SITE EXTRAVASATION [None]
